FAERS Safety Report 21566831 (Version 1)
Quarter: 2022Q4

REPORT INFORMATION
  Report Type: Report from Study
  Country: FR (occurrence: FR)
  Receive Date: 20221108
  Receipt Date: 20221108
  Transmission Date: 20230112
  Serious: Yes (Other)
  Sender: FDA-Public Use
  Company Number: FR-BAYER-2018-118540

PATIENT
  Age: 25 Year
  Sex: Male
  Weight: 58 kg

DRUGS (30)
  1. MOXIFLOXACIN [Suspect]
     Active Substance: MOXIFLOXACIN
     Indication: Antibiotic prophylaxis
     Dosage: 800MG
     Route: 048
  2. CLOFAZIMINE [Suspect]
     Active Substance: CLOFAZIMINE
     Indication: Pulmonary tuberculosis
     Dosage: DOSAGE FORM: UNSPECIFIED
     Dates: start: 20150724, end: 20150909
  3. CLOFAZIMINE [Suspect]
     Active Substance: CLOFAZIMINE
     Indication: Antibiotic prophylaxis
  4. LEVOFLOXACIN [Suspect]
     Active Substance: LEVOFLOXACIN
     Indication: Antibiotic prophylaxis
     Dosage: 750MG
  5. LINEZOLID [Suspect]
     Active Substance: LINEZOLID
     Indication: Antibiotic prophylaxis
     Dosage: 1200MG
  6. LINEZOLID [Suspect]
     Active Substance: LINEZOLID
     Indication: Antibiotic prophylaxis
     Dosage: 600MG
  7. AMINOSALICYLATE SODIUM [Suspect]
     Active Substance: AMINOSALICYLATE SODIUM
     Indication: Antibiotic prophylaxis
  8. AMINOSALICYLIC ACID [Suspect]
     Active Substance: AMINOSALICYLIC ACID
     Indication: Antibiotic prophylaxis
     Dosage: UNK
  9. AMINOSALICYLIC ACID [Suspect]
     Active Substance: AMINOSALICYLIC ACID
     Indication: Antibiotic prophylaxis
  10. CYCLOSERINE [Suspect]
     Active Substance: CYCLOSERINE
     Indication: Antibiotic prophylaxis
     Dosage: 500MG
  11. CYCLOSERINE [Suspect]
     Active Substance: CYCLOSERINE
     Indication: Pulmonary tuberculosis
  12. AMIKACIN [Suspect]
     Active Substance: AMIKACIN
     Indication: Antibiotic prophylaxis
     Dosage: 600MG
  13. TRECATOR [Suspect]
     Active Substance: ETHIONAMIDE
     Indication: Antibiotic prophylaxis
     Dosage: 250MG
  14. DELAMANID [Suspect]
     Active Substance: DELAMANID
     Indication: Pulmonary tuberculosis
     Dosage: UNK
  15. BEDAQUILINE [Suspect]
     Active Substance: BEDAQUILINE
     Indication: Tuberculosis
     Dosage: 600MG
     Dates: start: 20150323
  16. PYRAZINAMIDE [Suspect]
     Active Substance: PYRAZINAMIDE
     Indication: Antibiotic prophylaxis
  17. SERETIDE [Concomitant]
     Active Substance: FLUTICASONE PROPIONATE\SALMETEROL XINAFOATE
     Dosage: DOSAGE FORM: UNSPECIFIED
  18. FOLIC ACID [Concomitant]
     Active Substance: FOLIC ACID
     Dosage: DOSAGE FORM: UNSPECIFIED
  19. PYRIDOXINE [Concomitant]
     Active Substance: PYRIDOXINE
     Dosage: DOSAGE FORM: UNSPECIFIED
  20. DAFALGAN [Concomitant]
     Active Substance: ACETAMINOPHEN
     Dosage: DOSAGE FORM: UNSPECIFIED
  21. PHLOROGLUCINOL [Concomitant]
     Active Substance: PHLOROGLUCINOL
     Dosage: DOSAGE FORM: UNSPECIFIED
  22. MAGNESPASMYL [Concomitant]
     Dosage: DOSAGE FORM: UNSPECIFIED
  23. CETORNAN [Concomitant]
     Dosage: DOSAGE FORM: UNSPECIFIED
  24. VENTOLINE ROTACAPS [Concomitant]
     Dosage: DOSAGE FORM: UNSPECIFIED
  25. RANITIDINE HYDROCHLORIDE [Concomitant]
     Active Substance: RANITIDINE HYDROCHLORIDE
     Dosage: DOSAGE FORM: UNSPECIFIED
  26. FERROUS SULFATE [Concomitant]
     Active Substance: FERROUS SULFATE
     Dosage: DOSAGE FORM: UNSPECIFIED
  27. CYANOCOBALAMIN;PYRIDOXINE;THIAMINE [Concomitant]
     Dosage: DOSAGE FORM: UNSPECIFIED
  28. ZOLPIDEM TARTRATE [Concomitant]
     Active Substance: ZOLPIDEM TARTRATE
     Dosage: DOSAGE FORM: UNSPECIFIED
  29. PRIMPERAN [Concomitant]
     Active Substance: METOCLOPRAMIDE HYDROCHLORIDE
     Dosage: DOSAGE FORM: UNSPECIFIED
  30. LYSOPAINE [BACITRACIN;LYSOZYME;PAPAIN] [Concomitant]

REACTIONS (10)
  - Electrocardiogram QT prolonged [None]
  - Off label use [None]
  - Product use in unapproved indication [None]
  - Osteonecrosis [Unknown]
  - Tuberculosis [Unknown]
  - Malaise [Unknown]
  - Hypotension [Unknown]
  - Electrocardiogram repolarisation abnormality [Unknown]
  - Polyneuropathy [Unknown]
  - Oligoarthritis [Unknown]

NARRATIVE: CASE EVENT DATE: 20150501
